FAERS Safety Report 20151526 (Version 1)
Quarter: 2021Q4

REPORT INFORMATION
  Report Type: Spontaneous
  Country: GB (occurrence: GB)
  Receive Date: 20211206
  Receipt Date: 20211206
  Transmission Date: 20220303
  Serious: Yes (Other)
  Sender: FDA-Public Use
  Company Number: GB-TEVA-2021-GB-1984987

PATIENT
  Age: 9 Decade
  Sex: Male

DRUGS (1)
  1. OMEPRAZOLE [Suspect]
     Active Substance: OMEPRAZOLE
     Indication: Drug therapy
     Dosage: THREE TIMES A DAY
     Route: 065

REACTIONS (4)
  - Gastric mucosal hypertrophy [Recovering/Resolving]
  - Weight decreased [Recovering/Resolving]
  - Hypomagnesaemia [Recovering/Resolving]
  - Gastric polyps [Recovering/Resolving]
